FAERS Safety Report 9321792 (Version 1)
Quarter: 2013Q2

REPORT INFORMATION
  Report Type: Spontaneous
  Country: IT (occurrence: None)
  Receive Date: 20130528
  Receipt Date: 20130528
  Transmission Date: 20140414
  Serious: Yes (Hospitalization)
  Sender: FDA-Public Use
  Company Number: 2013STPI000190

PATIENT
  Age: 57 Year
  Sex: Female

DRUGS (8)
  1. MATULANE (PROCARBAZINE HYDROCHLORIDE) CAPSULE, 50MG [Suspect]
     Indication: HODGKIN^S DISEASE
     Route: 048
     Dates: start: 20130305, end: 20130506
  2. CHLORAMBUCIL [Suspect]
     Indication: HODGKIN^S DISEASE
     Dates: start: 20130305, end: 20130506
  3. VINBLASTINE [Suspect]
     Indication: HODGKIN^S DISEASE
     Dates: start: 20130305, end: 20130506
  4. PREDNISONE [Suspect]
     Indication: HODGKIN^S DISEASE
     Route: 048
     Dates: start: 20130305, end: 20130506
  5. DOXORUBICIN [Suspect]
     Indication: HODGKIN^S DISEASE
     Dates: start: 20130305, end: 20130506
  6. BLEOMYCIN [Suspect]
     Indication: HODGKIN^S DISEASE
     Dates: start: 20130305, end: 20130506
  7. ETOPOSIDE [Suspect]
     Indication: HODGKIN^S DISEASE
     Route: 048
     Dates: start: 20130305, end: 20130506
  8. VINCRISTINE SULFATE [Suspect]
     Indication: HODGKIN^S DISEASE
     Dates: start: 20130305, end: 20130506

REACTIONS (2)
  - Hyperglycaemia [None]
  - Anaemia [None]
